FAERS Safety Report 4714996-1 (Version None)
Quarter: 2005Q3

REPORT INFORMATION
  Report Type: 
  Country: None (occurrence: None)
  Receive Date: 20050713
  Receipt Date: 20050627
  Transmission Date: 20060218
  Serious: Yes (Hospitalization)
  Sender: FDA-Public Use
  Company Number: 2005-BP-10815RO

PATIENT
  Age: 30 Year
  Sex: Male

DRUGS (2)
  1. METHADONE HCL [Suspect]
     Indication: DRUG ABUSER
  2. HEROIN (DIAMORPHINE) [Suspect]
     Indication: DRUG ABUSER

REACTIONS (5)
  - CARDIAC ANEURYSM [None]
  - INTRACARDIAC THROMBUS [None]
  - LEUKOCYTOSIS [None]
  - MYOCARDIAL INFARCTION [None]
  - VENTRICULAR DYSKINESIA [None]
